FAERS Safety Report 8952522 (Version 1)
Quarter: 2012Q4

REPORT INFORMATION
  Report Type: Report from Study
  Country: CA (occurrence: CA)
  Receive Date: 20121205
  Receipt Date: 20121205
  Transmission Date: 20130627
  Serious: Yes (Other)
  Sender: FDA-Public Use
  Company Number: CA-JNJFOC-20121113315

PATIENT
  Sex: Female
  Weight: 61 kg

DRUGS (2)
  1. REMICADE [Suspect]
     Indication: CROHN^S DISEASE
     Route: 042
     Dates: start: 20120820
  2. ENTOCORT [Concomitant]
     Route: 065
     Dates: start: 201209

REACTIONS (2)
  - Thrombosis [Recovered/Resolved]
  - Thyroid mass [Unknown]
